FAERS Safety Report 6965300-X (Version None)
Quarter: 2010Q3

REPORT INFORMATION
  Report Type: 
  Country: None (occurrence: None)
  Receive Date: 20100903
  Receipt Date: 20100825
  Transmission Date: 20110219
  Serious: Yes (Other)
  Sender: FDA-Public Use
  Company Number: BR-JNJFOC-20100809302

PATIENT

DRUGS (1)
  1. TYLENOL SINUS [Suspect]
     Indication: DRUG EXPOSURE DURING PREGNANCY
     Route: 064

REACTIONS (2)
  - DUCTUS ARTERIOSUS STENOSIS FOETAL [None]
  - FOETAL CARDIAC DISORDER [None]
